FAERS Safety Report 4664371-3 (Version None)
Quarter: 2005Q2

REPORT INFORMATION
  Report Type: 
  Country: None (occurrence: None)
  Receive Date: 20050518
  Receipt Date: 20050509
  Transmission Date: 20051028
  Serious: Yes (Other)
  Sender: FDA-Public Use
  Company Number: US-AMGEN-US132092

PATIENT
  Sex: Female
  Weight: 71.3 kg

DRUGS (8)
  1. NEULASTA [Suspect]
     Indication: CHEMOTHERAPY
  2. ATIVAN [Concomitant]
  3. PREDNISONE [Concomitant]
  4. DECADRON [Concomitant]
  5. BLEOMYCIN [Concomitant]
  6. ADRIAMYCIN PFS [Concomitant]
  7. VELBAN [Concomitant]
  8. DTIC-DOME [Concomitant]

REACTIONS (2)
  - DYSPNOEA [None]
  - PULMONARY FUNCTION TEST DECREASED [None]
